FAERS Safety Report 9017714 (Version 1)
Quarter: 2013Q1

REPORT INFORMATION
  Report Type: Spontaneous
  Country: US (occurrence: US)
  Receive Date: 20130118
  Receipt Date: 20130118
  Transmission Date: 20140127
  Serious: Yes (Death)
  Sender: FDA-Public Use
  Company Number: US-PAR PHARMACEUTICAL, INC-2013SCPR005021

PATIENT
  Age: 45 Year
  Sex: Female

DRUGS (4)
  1. FENTANYL CITRATE [Suspect]
     Indication: PRODUCT USED FOR UNKNOWN INDICATION
     Dosage: UNK, INGST + UNK
  2. ACETAMINOPHEN [Suspect]
     Indication: PRODUCT USED FOR UNKNOWN INDICATION
     Dosage: UNK, INGST + UNK
  3. COCAINE [Suspect]
     Indication: PRODUCT USED FOR UNKNOWN INDICATION
     Dosage: UNK, INGST + UNK
  4. OXYCODONE [Suspect]
     Indication: PRODUCT USED FOR UNKNOWN INDICATION
     Dosage: UNK, INGST + UNK

REACTIONS (2)
  - Intentional drug misuse [Fatal]
  - Death [Fatal]
